FAERS Safety Report 17332118 (Version 1)
Quarter: 2020Q1

REPORT INFORMATION
  Report Type: Spontaneous
  Country: VE (occurrence: VE)
  Receive Date: 20200127
  Receipt Date: 20200127
  Transmission Date: 20200409
  Serious: Yes (Other)
  Sender: FDA-Public Use
  Company Number: VE-UCBSA-2020003291

PATIENT
  Age: 34 Year
  Sex: Female

DRUGS (2)
  1. VALPRON [VALPROIC ACID] [Concomitant]
     Indication: PRODUCT USED FOR UNKNOWN INDICATION
     Dosage: UNK
  2. KEPPRA [Suspect]
     Active Substance: LEVETIRACETAM
     Indication: PRODUCT USED FOR UNKNOWN INDICATION
     Dosage: UNK

REACTIONS (4)
  - Tension headache [Unknown]
  - Neurofibromatosis [Unknown]
  - Epilepsy [Unknown]
  - Hydrocephalus [Unknown]
